FAERS Safety Report 5453874-X (Version None)
Quarter: 2007Q3

REPORT INFORMATION
  Report Type: 
  Country: None (occurrence: None)
  Receive Date: 20070917
  Receipt Date: 20070912
  Transmission Date: 20080115
  Serious: Yes (Other)
  Sender: FDA-Public Use
  Company Number: B0486671A

PATIENT
  Age: 32 Year
  Sex: Male

DRUGS (9)
  1. PAXIL [Suspect]
     Indication: DRUG USE FOR UNKNOWN INDICATION
     Dosage: 10MG PER DAY
     Route: 048
     Dates: start: 20060601, end: 20060701
  2. UNKNOWN DRUG [Concomitant]
     Route: 065
  3. UNKNOWN DRUG [Concomitant]
     Route: 065
  4. UNKNOWN DRUG [Concomitant]
     Route: 065
  5. UNKNOWN DRUG [Concomitant]
     Route: 065
  6. UNKNOWN DRUG [Concomitant]
     Route: 065
  7. UNKNOWN DRUG [Concomitant]
     Route: 065
  8. UNKNOWN DRUG [Concomitant]
     Route: 065
  9. UNKNOWN DRUG [Concomitant]
     Route: 065

REACTIONS (2)
  - DISUSE SYNDROME [None]
  - NEUROLEPTIC MALIGNANT SYNDROME [None]
